FAERS Safety Report 20871692 (Version 1)
Quarter: 2022Q2

REPORT INFORMATION
  Report Type: Spontaneous
  Country: US (occurrence: None)
  Receive Date: 20220524
  Receipt Date: 20220524
  Transmission Date: 20220720
  Serious: Yes (Life-Threatening, Hospitalization, Other)
  Sender: FDA-Public Use
  Company Number: None

PATIENT
  Age: 62 Year
  Sex: Female
  Weight: 69.75 kg

DRUGS (9)
  1. BUPROPION HYDROCHLORIDE EXTENDED RELEASE [Suspect]
     Active Substance: BUPROPION HYDROCHLORIDE
     Indication: Post-traumatic stress disorder
     Dosage: OTHER QUANTITY : 1 TABLET(S);?FREQUENCY : DAILY;?
     Route: 048
     Dates: start: 20170407, end: 20220416
  2. BUPROPION [Concomitant]
     Active Substance: BUPROPION
  3. DULOXETINE [Concomitant]
     Active Substance: DULOXETINE
  4. MELOXICAM [Concomitant]
     Active Substance: MELOXICAM
  5. NALTREXONE [Concomitant]
     Active Substance: NALTREXONE
  6. PRAZOSIN [Concomitant]
     Active Substance: PRAZOSIN
  7. TRAZODONE [Concomitant]
     Active Substance: TRAZODONE HYDROCHLORIDE
  8. TYLENOL [Concomitant]
     Active Substance: ACETAMINOPHEN
  9. VITAMINS [Concomitant]
     Active Substance: VITAMINS

REACTIONS (4)
  - Suicide attempt [None]
  - Contraindication to medical treatment [None]
  - Gun shot wound [None]
  - Face injury [None]

NARRATIVE: CASE EVENT DATE: 20220416
